FAERS Safety Report 7564850-5 (Version None)
Quarter: 2011Q2

REPORT INFORMATION
  Report Type: 
  Country: None (occurrence: None)
  Receive Date: 20110622
  Receipt Date: 20110203
  Transmission Date: 20111010
  Serious: Yes (Other)
  Sender: FDA-Public Use
  Company Number: US-MYLANLABS-2011S1000202

PATIENT
  Age: 52 Year
  Sex: Female
  Weight: 90 kg

DRUGS (12)
  1. CLOZAPINE [Suspect]
     Dosage: 9 PM
     Dates: end: 20101230
  2. GLUCOPHAGE [Concomitant]
     Indication: DIABETES MELLITUS
     Route: 048
  3. CLOZAPINE [Suspect]
     Dosage: 9 PM
     Dates: end: 20101230
  4. CLOZAPINE [Suspect]
     Dosage: 9 PM
     Dates: end: 20101230
  5. HYDROCHLOROTHIAZIDE [Concomitant]
     Indication: BLOOD PRESSURE
     Route: 048
  6. CLOZAPINE [Suspect]
     Indication: PSYCHOTIC DISORDER
     Dosage: 9 AM AND 2 PM
     Dates: end: 20101230
  7. CLOZAPINE [Suspect]
     Indication: MOOD DISORDER DUE TO A GENERAL MEDICAL CONDITION
     Dosage: 9 AM AND 2 PM
     Dates: end: 20101230
  8. CLOZAPINE [Suspect]
     Indication: MENTAL RETARDATION
     Dosage: 9 AM AND 2 PM
     Dates: end: 20101230
  9. DEPAKOTE [Concomitant]
     Indication: MOOD DISORDER DUE TO A GENERAL MEDICAL CONDITION
  10. SYNTHROID [Concomitant]
     Indication: HYPOTHYROIDISM
     Route: 048
  11. TRAZODONE HCL [Concomitant]
     Indication: INSOMNIA
     Route: 048
  12. NEURONTIN [Concomitant]
     Indication: AGITATION
     Route: 048

REACTIONS (1)
  - GRANULOCYTOPENIA [None]
